FAERS Safety Report 23342984 (Version 2)
Quarter: 2023Q4

REPORT INFORMATION
  Report Type: Report from Study
  Country: US (occurrence: US)
  Receive Date: 20231227
  Receipt Date: 20231229
  Transmission Date: 20240110
  Serious: Yes (Death, Other)
  Sender: FDA-Public Use
  Company Number: US-UCBSA-2023052432

PATIENT
  Sex: Male
  Weight: 68.027 kg

DRUGS (2)
  1. ROTIGOTINE [Interacting]
     Active Substance: ROTIGOTINE
     Indication: Parkinsonism
     Dosage: 4 MILLIGRAM, ONCE DAILY (QD) PATCH
     Route: 062
     Dates: end: 20231021
  2. ROTIGOTINE [Interacting]
     Active Substance: ROTIGOTINE
     Indication: Dementia with Lewy bodies

REACTIONS (14)
  - Dementia with Lewy bodies [Fatal]
  - Orthostatic hypotension [Fatal]
  - Inferior vena cava syndrome [Fatal]
  - Chronic kidney disease [Fatal]
  - Neuropathy peripheral [Fatal]
  - Arrhythmia [Unknown]
  - Loss of consciousness [Unknown]
  - Dyspnoea [Unknown]
  - Asthma [Unknown]
  - Sleep apnoea syndrome [Unknown]
  - Application site urticaria [Unknown]
  - Drug interaction [Unknown]
  - Product administered at inappropriate site [Unknown]
  - Product use in unapproved indication [Unknown]
